FAERS Safety Report 22055261 (Version 1)
Quarter: 2023Q1

REPORT INFORMATION
  Report Type: Spontaneous
  Country: US (occurrence: None)
  Receive Date: 20230302
  Receipt Date: 20230302
  Transmission Date: 20230418
  Serious: No
  Sender: FDA-Public Use
  Company Number: 2023A044824

PATIENT
  Age: 76 Year
  Sex: Female

DRUGS (2)
  1. FASENRA [Suspect]
     Active Substance: BENRALIZUMAB
     Dosage: UNKNOWN DOSE AND FREQUENCY
     Dates: start: 20211227
  2. FASENRA [Concomitant]
     Active Substance: BENRALIZUMAB
     Dates: start: 2020

REACTIONS (3)
  - Injection site discolouration [Not Recovered/Not Resolved]
  - Injection site pain [Unknown]
  - Wrong product administered [Not Recovered/Not Resolved]

NARRATIVE: CASE EVENT DATE: 20221227
